FAERS Safety Report 7250906-3 (Version None)
Quarter: 2011Q1

REPORT INFORMATION
  Report Type: 
  Country: None (occurrence: None)
  Receive Date: 20110128
  Receipt Date: 20110127
  Transmission Date: 20110831
  Serious: Yes (Death)
  Sender: FDA-Public Use
  Company Number: A0907402A

PATIENT
  Age: 71 Year
  Sex: Female
  Weight: 47.7 kg

DRUGS (5)
  1. ERLOTINIB [Suspect]
     Indication: NON-SMALL CELL LUNG CANCER
     Dosage: 150MG PER DAY
     Route: 048
     Dates: start: 20101203, end: 20110113
  2. PAZOPANIB [Suspect]
     Indication: NON-SMALL CELL LUNG CANCER
     Route: 048
     Dates: start: 20101203, end: 20110113
  3. ADVIL [Concomitant]
     Dates: start: 20101212
  4. BETIMOL [Concomitant]
     Indication: GLAUCOMA
     Dosage: 1DROP PER DAY
     Dates: start: 20091015
  5. AMBIEN [Concomitant]
     Indication: SLEEP DISORDER
     Dates: start: 20100520

REACTIONS (1)
  - DEATH [None]
